FAERS Safety Report 6687679-9 (Version None)
Quarter: 2010Q2

REPORT INFORMATION
  Report Type: 
  Country: None (occurrence: None)
  Receive Date: 20100415
  Receipt Date: 20100409
  Transmission Date: 20101027
  Serious: Yes (Other)
  Sender: FDA-Public Use
  Company Number: 1000012018

PATIENT
  Age: 7 Year
  Sex: Male
  Weight: 39.4 kg

DRUGS (1)
  1. CARBAMAZEPINE [Suspect]
     Dosage: 20 MG/KG (20 MG/KG, 1 IN 1 D)

REACTIONS (9)
  - ABNORMAL BEHAVIOUR [None]
  - COGNITIVE DISORDER [None]
  - CONVULSION [None]
  - DISTURBANCE IN ATTENTION [None]
  - DYSARTHRIA [None]
  - LEARNING DISABILITY [None]
  - PSYCHOMOTOR HYPERACTIVITY [None]
  - SALIVARY HYPERSECRETION [None]
  - VISUAL FIELD DEFECT [None]
